FAERS Safety Report 12709946 (Version 5)
Quarter: 2017Q2

REPORT INFORMATION
  Report Type: Spontaneous
  Country: BR (occurrence: BR)
  Receive Date: 20160902
  Receipt Date: 20170601
  Transmission Date: 20170830
  Serious: Yes (Other)
  Sender: FDA-Public Use
  Company Number: BR-VALIDUS PHARMACEUTICALS LLC-BR-2015VAL000601

PATIENT

DRUGS (7)
  1. CABERGOLINA [Suspect]
     Active Substance: CABERGOLINE
     Indication: PRODUCT USED FOR UNKNOWN INDICATION
     Dosage: UNK
     Route: 065
  2. PARLODEL [Suspect]
     Active Substance: BROMOCRIPTINE MESYLATE
     Dosage: 3 DF, QD
     Route: 048
  3. PARLODEL [Suspect]
     Active Substance: BROMOCRIPTINE MESYLATE
     Indication: PITUITARY TUMOUR BENIGN
     Dosage: 3 DF, QD
     Route: 048
     Dates: start: 20030508
  4. PARLODEL [Suspect]
     Active Substance: BROMOCRIPTINE MESYLATE
     Dosage: 3 DF, QD
     Route: 048
  5. QUETIAPINE (NGX) [Suspect]
     Active Substance: QUETIAPINE
     Indication: PITUITARY TUMOUR BENIGN
     Dosage: UNK
     Route: 065
  6. PARLODEL [Suspect]
     Active Substance: BROMOCRIPTINE MESYLATE
     Dosage: LOWER DOSAGE
     Route: 048
  7. ENALAPRIL [Concomitant]
     Active Substance: ENALAPRIL
     Indication: PRODUCT USED FOR UNKNOWN INDICATION
     Dosage: 0.5 MG, UNK

REACTIONS (11)
  - Weight increased [Recovered/Resolved]
  - Drug ineffective [Recovering/Resolving]
  - Product use issue [Recovering/Resolving]
  - Drug intolerance [Recovering/Resolving]
  - Mood altered [Unknown]
  - Tooth loss [Recovering/Resolving]
  - Blood testosterone decreased [Recovered/Resolved]
  - Tooth disorder [Recovering/Resolving]
  - Blindness [Recovering/Resolving]
  - Seizure [Recovering/Resolving]
  - Pituitary tumour [Recovering/Resolving]

NARRATIVE: CASE EVENT DATE: 2015
